FAERS Safety Report 15606371 (Version 1)
Quarter: 2018Q4

REPORT INFORMATION
  Report Type: Spontaneous
  Country: US (occurrence: US)
  Receive Date: 20181112
  Receipt Date: 20181112
  Transmission Date: 20190205
  Serious: No
  Sender: FDA-Public Use
  Company Number: US-BAYER-2018-209613

PATIENT
  Age: 86 Year
  Sex: Male
  Weight: 83 kg

DRUGS (2)
  1. SENOKOT [Concomitant]
     Active Substance: SENNOSIDES
     Dosage: UNK
  2. MIRALAX [Suspect]
     Active Substance: POLYETHYLENE GLYCOL 3350
     Dosage: 17 G,  IN A 4-8 OZ  UNK
     Route: 048

REACTIONS (2)
  - Frequent bowel movements [Unknown]
  - Gastrointestinal motility disorder [Unknown]
